FAERS Safety Report 13368613 (Version 1)
Quarter: 2017Q1

REPORT INFORMATION
  Report Type: Spontaneous
  Country: FR (occurrence: FR)
  Receive Date: 20170324
  Receipt Date: 20170324
  Transmission Date: 20170429
  Serious: Yes (Hospitalization)
  Sender: FDA-Public Use
  Company Number: FR-PFIZER INC-2017119191

PATIENT
  Age: 83 Year
  Sex: Female

DRUGS (2)
  1. CADUET [Suspect]
     Active Substance: AMLODIPINE BESYLATE\ATORVASTATIN CALCIUM
     Indication: HYPERTENSION
     Dosage: 1 DF, 1X/DAY
     Route: 048
     Dates: end: 20161028
  2. TEMERIT [Suspect]
     Active Substance: NEBIVOLOL
     Indication: HYPERTENSIVE HEART DISEASE
     Dosage: 5 MG, 1X/DAY
     Dates: end: 20161028

REACTIONS (3)
  - Fall [Unknown]
  - Bradycardia [Unknown]
  - Hypotension [Unknown]

NARRATIVE: CASE EVENT DATE: 201610
